FAERS Safety Report 12667487 (Version 2)
Quarter: 2016Q3

REPORT INFORMATION
  Report Type: Spontaneous
  Country: US (occurrence: US)
  Receive Date: 20160819
  Receipt Date: 20160901
  Transmission Date: 20161109
  Serious: No
  Sender: FDA-Public Use
  Company Number: US-PFIZER INC-2016390953

PATIENT
  Age: 81 Year
  Sex: Female
  Weight: 67.12 kg

DRUGS (6)
  1. COMBIVENT [Concomitant]
     Active Substance: ALBUTEROL SULFATE\IPRATROPIUM BROMIDE
     Indication: CHRONIC OBSTRUCTIVE PULMONARY DISEASE
     Dosage: UNK, 1X/DAY
  2. TYLENOL EXTRA STRENGTH [Concomitant]
     Active Substance: ACETAMINOPHEN
     Indication: RHEUMATOID ARTHRITIS
     Dosage: 2 DF, 3X/DAY
     Route: 048
  3. XELJANZ XR [Suspect]
     Active Substance: TOFACITINIB CITRATE
     Indication: RHEUMATOID ARTHRITIS
     Dosage: 11 MG, 1X/DAY
     Route: 048
     Dates: end: 20160814
  4. FLOVENT [Concomitant]
     Active Substance: FLUTICASONE PROPIONATE
     Indication: CHRONIC OBSTRUCTIVE PULMONARY DISEASE
     Dosage: 110 MG, 2X/DAY (TWO PUFFS IN AM AND TWO PUFF IN EVENING)
  5. PROFERRIN [Concomitant]
     Indication: IRON DEFICIENCY
     Dosage: UNK
  6. XELJANZ XR [Suspect]
     Active Substance: TOFACITINIB CITRATE
     Dosage: 11 MG, 1X/DAY
     Route: 048
     Dates: start: 20160817, end: 20160817

REACTIONS (6)
  - Dyspnoea [Recovering/Resolving]
  - Bowel movement irregularity [Recovered/Resolved]
  - Nausea [Recovering/Resolving]
  - Dysuria [Recovered/Resolved]
  - Product label issue [Unknown]
  - Abdominal pain upper [Recovering/Resolving]
